FAERS Safety Report 24980543 (Version 1)
Quarter: 2025Q1

REPORT INFORMATION
  Report Type: Spontaneous
  Country: US (occurrence: None)
  Receive Date: 20250214
  Receipt Date: 20250214
  Transmission Date: 20250409
  Serious: Yes (Other)
  Sender: FDA-CTU
  Company Number: None

PATIENT
  Age: 55 Year
  Sex: Male

DRUGS (1)
  1. STELARA [Suspect]
     Active Substance: USTEKINUMAB
     Dates: start: 20241213, end: 20250214

REACTIONS (3)
  - Condition aggravated [None]
  - Intestinal obstruction [None]
  - Therapy cessation [None]

NARRATIVE: CASE EVENT DATE: 20250214
